FAERS Safety Report 8818009 (Version 7)
Quarter: 2014Q3

REPORT INFORMATION
  Report Type: Spontaneous
  Country: US (occurrence: US)
  Receive Date: 20121001
  Receipt Date: 20140811
  Transmission Date: 20150326
  Serious: Yes (Hospitalization, Other)
  Sender: FDA-Public Use
  Company Number: US-ROXANE LABORATORIES, INC.-2012-RO-01918RO

PATIENT
  Age: 16 Year
  Sex: Male

DRUGS (9)
  1. CYTARABINE. [Suspect]
     Active Substance: CYTARABINE
     Indication: ACUTE LYMPHOCYTIC LEUKAEMIA
     Route: 065
     Dates: start: 20120828, end: 20120829
  2. METHOTREXATE [Suspect]
     Active Substance: METHOTREXATE
     Indication: ACUTE LYMPHOCYTIC LEUKAEMIA
     Route: 065
     Dates: start: 20120901
  3. DEXAMETHASONE. [Suspect]
     Active Substance: DEXAMETHASONE
     Indication: ACUTE LYMPHOCYTIC LEUKAEMIA
     Route: 065
     Dates: start: 20120828, end: 20120901
  4. ASPARAGINASE [Suspect]
     Active Substance: ASPARAGINASE
     Indication: ACUTE LYMPHOCYTIC LEUKAEMIA
     Route: 065
     Dates: start: 20120902
  5. DOXORUBICIN [Suspect]
     Active Substance: DOXORUBICIN
     Indication: ACUTE LYMPHOCYTIC LEUKAEMIA
     Route: 065
  6. DASATINIB [Suspect]
     Active Substance: DASATINIB
     Indication: ACUTE LYMPHOCYTIC LEUKAEMIA
     Dosage: 100 MG
     Route: 048
     Dates: start: 20120828, end: 20120902
  7. DASATINIB [Suspect]
     Active Substance: DASATINIB
     Dosage: 20 MG
     Route: 048
     Dates: start: 20121029, end: 20121116
  8. ETOPOSIDE. [Suspect]
     Active Substance: ETOPOSIDE
     Indication: ACUTE LYMPHOCYTIC LEUKAEMIA
     Route: 065
     Dates: start: 20120830, end: 20120901
  9. VINCRISTINE [Suspect]
     Active Substance: VINCRISTINE
     Indication: ACUTE LYMPHOCYTIC LEUKAEMIA
     Route: 065

REACTIONS (17)
  - Hypotension [Recovered/Resolved]
  - Pleural effusion [Recovered/Resolved]
  - Blood creatinine increased [Recovered/Resolved]
  - Neutropenia [Unknown]
  - Septic shock [Recovered/Resolved]
  - Pneumonia klebsiella [Unknown]
  - Sepsis [Recovered/Resolved]
  - Vomiting [Recovered/Resolved]
  - Colitis [Recovered/Resolved with Sequelae]
  - Gastrointestinal necrosis [Recovered/Resolved with Sequelae]
  - Pyrexia [Recovered/Resolved]
  - Renal failure acute [Recovered/Resolved]
  - Respiratory distress [Recovered/Resolved]
  - Intestinal perforation [Recovered/Resolved with Sequelae]
  - Peritonitis [Recovered/Resolved with Sequelae]
  - Haemodynamic instability [Recovered/Resolved]
  - Empyema [Unknown]

NARRATIVE: CASE EVENT DATE: 20120907
